FAERS Safety Report 9665940 (Version 1)
Quarter: 2013Q4

REPORT INFORMATION
  Report Type: Report from Study
  Country: BR (occurrence: BR)
  Receive Date: 20131104
  Receipt Date: 20131104
  Transmission Date: 20140711
  Serious: Yes (Other)
  Sender: FDA-Public Use
  Company Number: PHHY2013BR121015

PATIENT
  Sex: Male
  Weight: 92 kg

DRUGS (5)
  1. GALVUS MET [Suspect]
     Indication: DIABETES MELLITUS
     Dosage: 2 DF, (METF 850 MG/ VILD 50 MG) DAILY
     Route: 048
  2. METFORMIN [Suspect]
     Indication: DIABETES MELLITUS
     Dosage: 850 MG, DAILY
     Route: 048
  3. ATENOLOL [Suspect]
     Indication: HYPERTENSION
     Dosage: 2 DF, (25 MG) DAILY
     Route: 048
  4. LEXAPRO [Suspect]
     Indication: DEPRESSION
     Dosage: 1 DF (15MG), DAILY
     Route: 048
  5. DIAMICRON [Suspect]
     Indication: DIABETES MELLITUS
     Dosage: 1 DF (60MG), DAILY
     Route: 048

REACTIONS (10)
  - Hydrocephalus [Recovering/Resolving]
  - Dementia Alzheimer^s type [Recovering/Resolving]
  - Parkinson^s disease [Recovering/Resolving]
  - Blood cholesterol increased [Recovering/Resolving]
  - Thyroid disorder [Recovering/Resolving]
  - Gait disturbance [Recovering/Resolving]
  - Screaming [Recovering/Resolving]
  - Speech disorder [Recovering/Resolving]
  - Mood altered [Recovering/Resolving]
  - Tremor [Recovering/Resolving]
